FAERS Safety Report 12856617 (Version 2)
Quarter: 2018Q4

REPORT INFORMATION
  Report Type: Spontaneous
  Country: US (occurrence: US)
  Receive Date: 20161018
  Receipt Date: 20181015
  Transmission Date: 20190204
  Serious: No
  Sender: FDA-Public Use
  Company Number: US-CIPLA LTD.-2016US07088

PATIENT

DRUGS (3)
  1. METOPROLOL. [Concomitant]
     Active Substance: METOPROLOL
     Indication: HYPERTENSION
     Dosage: 50 MG, QD
     Route: 065
  2. QUINAPRIL. [Suspect]
     Active Substance: QUINAPRIL
     Dosage: 10 MG, UNK, INVAGEN MANUFACTURED
     Route: 048
     Dates: start: 201511
  3. QUINAPRIL. [Suspect]
     Active Substance: QUINAPRIL
     Indication: HYPERTENSION
     Dosage: 10 MG, QD, UNKNOWN MANUFACTURER
     Route: 048

REACTIONS (5)
  - Headache [Recovered/Resolved]
  - Product substitution issue [Unknown]
  - Drug ineffective [Unknown]
  - Oedema [Recovered/Resolved]
  - Rash [Recovered/Resolved]

NARRATIVE: CASE EVENT DATE: 201511
